FAERS Safety Report 17902530 (Version 3)
Quarter: 2022Q1

REPORT INFORMATION
  Report Type: Spontaneous
  Country: US (occurrence: US)
  Receive Date: 20200616
  Receipt Date: 20220104
  Transmission Date: 20220423
  Serious: No
  Sender: FDA-Public Use
  Company Number: US-PFIZER INC-2020232207

PATIENT
  Age: 67 Year
  Sex: Female

DRUGS (1)
  1. XELJANZ XR [Suspect]
     Active Substance: TOFACITINIB CITRATE
     Dosage: 11 MG

REACTIONS (9)
  - Arthropathy [Unknown]
  - Pain [Not Recovered/Not Resolved]
  - Depression [Unknown]
  - Contusion [Unknown]
  - Headache [Unknown]
  - Hypertension [Unknown]
  - Peripheral swelling [Unknown]
  - Arthritis [Unknown]
  - Walking aid user [Unknown]
